FAERS Safety Report 5685209-1 (Version None)
Quarter: 2008Q1

REPORT INFORMATION
  Report Type: 
  Country: None (occurrence: None)
  Receive Date: 20080328
  Receipt Date: 20080317
  Transmission Date: 20080703
  Serious: Yes (Other)
  Sender: FDA-Public Use
  Company Number: AR-PFIZER INC-2008010881

PATIENT
  Sex: Female
  Weight: 61 kg

DRUGS (2)
  1. ZOLOFT [Suspect]
     Indication: DEPRESSION
     Route: 048
  2. CLONAZEPAM [Concomitant]
     Route: 048

REACTIONS (4)
  - CORNEAL LESION [None]
  - DRY EYE [None]
  - DRY SKIN [None]
  - HYPERHIDROSIS [None]
